FAERS Safety Report 10549045 (Version 1)
Quarter: 2014Q4

REPORT INFORMATION
  Report Type: Spontaneous
  Country: US (occurrence: None)
  Receive Date: 20141015
  Receipt Date: 20141015
  Transmission Date: 20150529
  Serious: No
  Sender: FDA-Public Use
  Company Number: 2014US003440

PATIENT
  Age: 12 Year
  Sex: Male

DRUGS (7)
  1. ICLUSIG [Suspect]
     Active Substance: PONATINIB
     Indication: ACUTE LYMPHOCYTIC LEUKAEMIA
     Route: 048
  2. LEXAPRO [Concomitant]
     Active Substance: ESCITALOPRAM OXALATE
  3. MEROPENEM (MEROPENEM) [Concomitant]
     Active Substance: MEROPENEM
  4. MARINOL [Concomitant]
     Active Substance: DRONABINOL
  5. VALCYTE (VALGANCICLOVIR HYDROCHLORIDE) [Concomitant]
  6. PREVACID [Concomitant]
     Active Substance: LANSOPRAZOLE
  7. NASONEX [Concomitant]
     Active Substance: MOMETASONE FUROATE

REACTIONS (2)
  - Pain in extremity [None]
  - Off label use [None]
